FAERS Safety Report 7373176-4 (Version None)
Quarter: 2011Q1

REPORT INFORMATION
  Report Type: 
  Country: None (occurrence: None)
  Receive Date: 20110324
  Receipt Date: 20110322
  Transmission Date: 20110831
  Serious: Yes (Other)
  Sender: FDA-Public Use
  Company Number: US-ABBOTT-11P-163-0713249-00

PATIENT
  Age: 17 Year
  Sex: Female

DRUGS (3)
  1. REYATAZ [Suspect]
     Indication: ANTIRETROVIRAL THERAPY
     Route: 048
     Dates: start: 20101108, end: 20110309
  2. NORVIR [Suspect]
     Indication: ANTIRETROVIRAL THERAPY
     Dosage: 100 MG/KG/HR
     Route: 048
     Dates: start: 20101108, end: 20110309
  3. TRUVADA [Suspect]
     Indication: ANTIRETROVIRAL THERAPY
     Route: 048
     Dates: start: 20101108, end: 20110309

REACTIONS (1)
  - ABORTION SPONTANEOUS [None]
